FAERS Safety Report 14880480 (Version 2)
Quarter: 2018Q2

REPORT INFORMATION
  Report Type: Spontaneous
  Country: US (occurrence: US)
  Receive Date: 20180511
  Receipt Date: 20180518
  Transmission Date: 20180711
  Serious: No
  Sender: FDA-Public Use
  Company Number: US-GLAXOSMITHKLINE-US2018079555

PATIENT
  Sex: Female

DRUGS (18)
  1. ROBAXIN [Concomitant]
     Active Substance: METHOCARBAMOL
  2. TYLENOL WITH CODEINE [Concomitant]
     Active Substance: ACETAMINOPHEN\CODEINE PHOSPHATE
  3. ZOFRAN [Concomitant]
     Active Substance: ONDANSETRON HYDROCHLORIDE
  4. AVAPRO [Concomitant]
     Active Substance: IRBESARTAN
  5. DIFLUCAN [Concomitant]
     Active Substance: FLUCONAZOLE
  6. PEPCID [Concomitant]
     Active Substance: FAMOTIDINE
  7. PROVENTIL HFA [Concomitant]
     Active Substance: ALBUTEROL SULFATE
  8. LUNESTA [Concomitant]
     Active Substance: ESZOPICLONE
  9. PLAQUENIL [Concomitant]
     Active Substance: HYDROXYCHLOROQUINE SULFATE
  10. SINGULAIR [Concomitant]
     Active Substance: MONTELUKAST SODIUM
  11. VALTREX [Concomitant]
     Active Substance: VALACYCLOVIR HYDROCHLORIDE
  12. BENLYSTA [Suspect]
     Active Substance: BELIMUMAB
     Indication: SYSTEMIC LUPUS ERYTHEMATOSUS
     Dosage: 200 MG, WE
     Route: 058
     Dates: start: 20180404
  13. GABAPENTIN. [Concomitant]
     Active Substance: GABAPENTIN
  14. ESGIC [Concomitant]
     Active Substance: ACETAMINOPHEN\BUTALBITAL\CAFFEINE
  15. TOPAMAX [Concomitant]
     Active Substance: TOPIRAMATE
  16. ASPIRIN. [Concomitant]
     Active Substance: ASPIRIN
  17. FOLIC ACID. [Concomitant]
     Active Substance: FOLIC ACID
  18. SYNTHROID [Concomitant]
     Active Substance: LEVOTHYROXINE SODIUM

REACTIONS (8)
  - Akathisia [Recovering/Resolving]
  - Nausea [Recovering/Resolving]
  - Condition aggravated [Unknown]
  - Headache [Recovering/Resolving]
  - Anxiety [Recovering/Resolving]
  - Drug ineffective [Unknown]
  - Ill-defined disorder [Unknown]
  - Arthropathy [Unknown]
